FAERS Safety Report 19232670 (Version 2)
Quarter: 2021Q2

REPORT INFORMATION
  Report Type: Report from Study
  Country: PL (occurrence: PL)
  Receive Date: 20210507
  Receipt Date: 20210528
  Transmission Date: 20210717
  Serious: Yes (Hospitalization, Other)
  Sender: FDA-Public Use
  Company Number: PL-PFIZER INC-2021484501

PATIENT
  Age: 20 Year
  Sex: Male

DRUGS (5)
  1. IBUPROFEN. [Suspect]
     Active Substance: IBUPROFEN
     Dosage: 2000 MG
     Route: 048
  2. MELPERONE [Suspect]
     Active Substance: MELPERONE
     Dosage: 2500 MG
     Route: 048
  3. PREGABALIN. [Suspect]
     Active Substance: PREGABALIN
     Dosage: 1500 MG
     Route: 048
  4. TAMOXIFEN [Suspect]
     Active Substance: TAMOXIFEN
     Dosage: 400 MG
     Route: 048
  5. ZOPICLONE [Suspect]
     Active Substance: ZOPICLONE
     Dosage: 225 MG
     Route: 048

REACTIONS (10)
  - Metabolic acidosis [Recovering/Resolving]
  - Hypercalcaemia [Unknown]
  - Liver injury [Unknown]
  - Hyperkalaemia [Unknown]
  - Drug abuse [Unknown]
  - Overdose [Unknown]
  - Rhabdomyolysis [Unknown]
  - Pneumonia [Unknown]
  - Toxicity to various agents [Unknown]
  - Acute kidney injury [Recovering/Resolving]
